FAERS Safety Report 15686755 (Version 3)
Quarter: 2019Q2

REPORT INFORMATION
  Report Type: Report from Study
  Country: US (occurrence: US)
  Receive Date: 20181204
  Receipt Date: 20190624
  Transmission Date: 20190711
  Serious: Yes (Hospitalization)
  Sender: FDA-Public Use
  Company Number: US-ACTELION-A-US2018-172135

PATIENT
  Age: 7 Year
  Sex: Female
  Weight: 21.77 kg

DRUGS (6)
  1. UPTRAVI [Suspect]
     Active Substance: SELEXIPAG
     Indication: PULMONARY ARTERIAL HYPERTENSION
     Dosage: 600 MCG, BID
     Route: 048
  2. UPTRAVI [Suspect]
     Active Substance: SELEXIPAG
     Dosage: 200 MCG, BID
     Route: 048
     Dates: start: 20180209, end: 20180321
  3. UPTRAVI [Suspect]
     Active Substance: SELEXIPAG
     Dosage: 400 MCG, BID
     Route: 048
     Dates: start: 20180322
  4. LETAIRIS [Concomitant]
     Active Substance: AMBRISENTAN
     Dosage: 5 MG, QD
  5. ADCIRCA [Concomitant]
     Active Substance: TADALAFIL
     Dosage: 15 MG, QD
  6. WARFARIN [Concomitant]
     Active Substance: WARFARIN

REACTIONS (16)
  - Pyrexia [Recovered/Resolved]
  - Diarrhoea [Recovered/Resolved]
  - Anaemia [Recovering/Resolving]
  - Giardiasis [Unknown]
  - Heart rate decreased [Recovering/Resolving]
  - Lethargy [Recovering/Resolving]
  - Nausea [Unknown]
  - Pulmonary haemorrhage [Unknown]
  - Headache [Recovered/Resolved]
  - Cardiac arrest [Recovering/Resolving]
  - Cardiac disorder [Recovering/Resolving]
  - Hypoxia [Recovered/Resolved]
  - Pulmonary hypertension [Unknown]
  - Vomiting [Recovering/Resolving]
  - Dyspnoea [Recovering/Resolving]
  - Clostridium difficile infection [Recovering/Resolving]

NARRATIVE: CASE EVENT DATE: 20180322
